FAERS Safety Report 9711675 (Version 1)
Quarter: 2013Q4

REPORT INFORMATION
  Report Type: Spontaneous
  Country: US (occurrence: US)
  Receive Date: 20131126
  Receipt Date: 20131126
  Transmission Date: 20140711
  Serious: No
  Sender: FDA-Public Use
  Company Number: US-BRISTOL-MYERS SQUIBB COMPANY-19093699

PATIENT
  Age: 50 Year
  Sex: Male

DRUGS (4)
  1. BYDUREON [Suspect]
     Dosage: THERAPY-6 TO 8 WEEKS
  2. METFORMIN [Concomitant]
  3. LISINOPRIL [Concomitant]
  4. METOPROLOL [Concomitant]

REACTIONS (1)
  - Pancreatic enzymes increased [Recovered/Resolved]
